FAERS Safety Report 4946776-6 (Version None)
Quarter: 2006Q1

REPORT INFORMATION
  Report Type: 
  Country: None (occurrence: None)
  Receive Date: 20060201
  Receipt Date: 20051214
  Transmission Date: 20060701
  Serious: No
  Sender: FDA-Public Use
  Company Number: 2005PV005850

PATIENT
  Age: 54 Year
  Sex: Female
  Weight: 136.0791 kg

DRUGS (3)
  1. BYETTA [Suspect]
     Indication: DIABETES MELLITUS NON-INSULIN-DEPENDENT
     Dosage: 5 MCG; BID; SC
     Route: 058
     Dates: start: 20051213
  2. GLUCOPHAGE XR [Concomitant]
  3. ACTOS [Concomitant]

REACTIONS (5)
  - DECREASED APPETITE [None]
  - ENERGY INCREASED [None]
  - FEELING HOT [None]
  - FLUSHING [None]
  - THERAPEUTIC RESPONSE UNEXPECTED [None]
